FAERS Safety Report 12709995 (Version 2)
Quarter: 2016Q4

REPORT INFORMATION
  Report Type: Spontaneous
  Country: US (occurrence: US)
  Receive Date: 20160902
  Receipt Date: 20161214
  Transmission Date: 20170207
  Serious: No
  Sender: FDA-Public Use
  Company Number: US-APOTEX-2015AP014803

PATIENT
  Sex: Male

DRUGS (1)
  1. FENTANYL TRANSDERMAL SYSTEM [Suspect]
     Active Substance: FENTANYL
     Indication: ANALGESIC THERAPY
     Dosage: 1 EVERY 72 HOURS
     Route: 065

REACTIONS (3)
  - Burning sensation [Recovered/Resolved]
  - Drug ineffective [Recovered/Resolved]
  - Keratosis pilaris [Recovered/Resolved]
